FAERS Safety Report 23937657 (Version 2)
Quarter: 2024Q3

REPORT INFORMATION
  Report Type: Spontaneous
  Country: JP (occurrence: None)
  Receive Date: 20240604
  Receipt Date: 20240709
  Transmission Date: 20241017
  Serious: Yes (Death, Hospitalization)
  Sender: ASTRAZENECA
  Company Number: 2024A127317

PATIENT
  Age: 90 Year
  Sex: Male

DRUGS (1)
  1. BREZTRI [Suspect]
     Active Substance: BUDESONIDE\FORMOTEROL\GLYCOPYRROLATE
     Dosage: DOSE UNKNOWN
     Route: 055

REACTIONS (6)
  - Subarachnoid haematoma [Fatal]
  - Fall [Fatal]
  - Contusion [Fatal]
  - Cardiac failure [Unknown]
  - Cardiovascular disorder [Unknown]
  - Orthostatic hypotension [Unknown]
